FAERS Safety Report 9634657 (Version 1)
Quarter: 2013Q4

REPORT INFORMATION
  Report Type: Spontaneous
  Country: US (occurrence: US)
  Receive Date: 20131021
  Receipt Date: 20131021
  Transmission Date: 20140711
  Serious: Yes (Disabling)
  Sender: FDA-Public Use
  Company Number: US-PFIZER INC-2013296986

PATIENT
  Age: 63 Year
  Sex: Female
  Weight: 63.5 kg

DRUGS (3)
  1. PREMARIN [Suspect]
     Indication: OESTROGEN REPLACEMENT THERAPY
     Dosage: 0.625 MG, 1X/DAY
     Route: 048
  2. LASIX [Concomitant]
     Dosage: UNK, AS NEEDED
  3. SINGULAIR [Concomitant]
     Indication: HYPERSENSITIVITY
     Dosage: UNK, 1X/DAY

REACTIONS (4)
  - Peripheral nerve injury [Unknown]
  - Ligament rupture [Unknown]
  - Joint dislocation [Unknown]
  - Bone disorder [Unknown]
